APPROVED DRUG PRODUCT: ANAPROX DS
Active Ingredient: NAPROXEN SODIUM
Strength: EQ 500MG BASE
Dosage Form/Route: TABLET;ORAL
Application: N018164 | Product #003 | TE Code: AB
Applicant: ATNAHS PHARMA US LTD
Approved: Sep 30, 1987 | RLD: Yes | RS: Yes | Type: RX